FAERS Safety Report 5771226-X (Version None)
Quarter: 2008Q2

REPORT INFORMATION
  Report Type: 
  Country: None (occurrence: None)
  Receive Date: 20080613
  Receipt Date: 20080528
  Transmission Date: 20081010
  Serious: No
  Sender: FDA-Public Use
  Company Number: US-ABBOTT-08P-163-0453830-00

PATIENT
  Sex: Female

DRUGS (2)
  1. HUMIRA [Suspect]
     Indication: CROHN'S DISEASE
     Route: 058
     Dates: start: 20070929, end: 20080507
  2. HUMIRA [Suspect]

REACTIONS (3)
  - MALAISE [None]
  - PSORIASIS [None]
  - STOMACH DISCOMFORT [None]
